FAERS Safety Report 11695631 (Version 1)
Quarter: 2015Q4

REPORT INFORMATION
  Report Type: Spontaneous
  Country: US (occurrence: US)
  Receive Date: 20151104
  Receipt Date: 20151104
  Transmission Date: 20160304
  Serious: Yes (Death)
  Sender: FDA-Public Use
  Company Number: US-BEH-2015055289

PATIENT
  Sex: Female
  Weight: 61 kg

DRUGS (16)
  1. EPIPEN [Concomitant]
     Active Substance: EPINEPHRINE
  2. LOSARTAN. [Concomitant]
     Active Substance: LOSARTAN
  3. SPIRIVA [Concomitant]
     Active Substance: TIOTROPIUM BROMIDE MONOHYDRATE
  4. DIPHENHYDRAMINE. [Concomitant]
     Active Substance: DIPHENHYDRAMINE
  5. SODIUM CHLORIDE. [Concomitant]
     Active Substance: SODIUM CHLORIDE
  6. SERTRALINE [Concomitant]
     Active Substance: SERTRALINE HYDROCHLORIDE
  7. ZEMAIRA [Suspect]
     Active Substance: .ALPHA.1-PROTEINASE INHIBITOR HUMAN
     Indication: ALPHA-1 ANTI-TRYPSIN DEFICIENCY
     Dosage: START DATE: ??-DEC-2012
     Route: 042
  8. HEPARIN [Concomitant]
     Active Substance: HEPARIN SODIUM
  9. LMX [Concomitant]
     Active Substance: LIDOCAINE
  10. ADVAIR HFA [Concomitant]
     Active Substance: FLUTICASONE PROPIONATE\SALMETEROL XINAFOATE
  11. ALBUTEROL. [Concomitant]
     Active Substance: ALBUTEROL
  12. MINIVELLE [Concomitant]
     Active Substance: ESTRADIOL
  13. BUMETANIDE. [Concomitant]
     Active Substance: BUMETANIDE
  14. HCTZ [Concomitant]
     Active Substance: HYDROCHLOROTHIAZIDE
  15. OMEPRAZOLE. [Concomitant]
     Active Substance: OMEPRAZOLE
  16. COLCRYS [Concomitant]
     Active Substance: COLCHICINE

REACTIONS (1)
  - Death [Fatal]
